FAERS Safety Report 8634682 (Version 5)
Quarter: 2012Q4

REPORT INFORMATION
  Report Type: 
  Country: PL (occurrence: PL)
  Receive Date: 20120626
  Receipt Date: 20120829
  Transmission Date: 20130627
  Serious: Yes (Other)
  Sender: FDA-Public Use
  Company Number: PHHY2012PL050684

PATIENT
  Age: 30 Year
  Sex: Female

DRUGS (9)
  1. OXCARBAZEPINE [Suspect]
     Indication: CONVULSION
     Dosage: 600 mg daily
  2. OXCARBAZEPINE [Interacting]
     Dosage: 1200 mg daily
  3. BROMOCRIPTINE [Interacting]
     Indication: PROLACTINOMA
     Dosage: 7.5 mg, daily
  4. BROMOCRIPTINE [Interacting]
     Dosage: 15 mg, daily
  5. BROMOCRIPTINE [Interacting]
     Dosage: 20 mg, daily
  6. CABERGOLINE [Suspect]
     Dosage: 0.25 mg, twice weekly
  7. CABERGOLINE [Suspect]
     Dosage: 2 mg, twice weekly
  8. QUINAGOLIDE [Concomitant]
     Dosage: 150 ug, daily
  9. QUINAGOLIDE [Concomitant]
     Dosage: 75 ug, daily

REACTIONS (5)
  - Prolactinoma [Unknown]
  - Neoplasm [Unknown]
  - Drug interaction [Unknown]
  - Menstrual disorder [Unknown]
  - Galactorrhoea [Unknown]
